FAERS Safety Report 4519079-1 (Version None)
Quarter: 2004Q4

REPORT INFORMATION
  Report Type: 
  Country: None (occurrence: None)
  Receive Date: 20041201
  Receipt Date: 20041115
  Transmission Date: 20050328
  Serious: Yes (Hospitalization)
  Sender: FDA-Public Use
  Company Number: 2004CG02274

PATIENT
  Age: 87 Year
  Sex: Male

DRUGS (5)
  1. PULMICORT [Suspect]
     Indication: ASTHMA
     Dosage: 100 UG QD IH
     Route: 055
     Dates: start: 20040925, end: 20040926
  2. VENTOLIN [Suspect]
     Indication: ASTHMA
     Dosage: 1.25 MG QD IH
     Route: 055
     Dates: start: 20040925, end: 20040926
  3. DEPAKENE [Concomitant]
  4. ZYLORIC [Concomitant]
  5. MONO-TILDIEM [Concomitant]

REACTIONS (2)
  - ASTHMA [None]
  - CONDITION AGGRAVATED [None]
